FAERS Safety Report 25258334 (Version 1)
Quarter: 2025Q2

REPORT INFORMATION
  Report Type: Report from Study
  Country: US (occurrence: US)
  Receive Date: 20250501
  Receipt Date: 20250501
  Transmission Date: 20250717
  Serious: Yes (Hospitalization)
  Sender: ALEXION PHARMACEUTICALS
  Company Number: US-AstraZeneca-CH-00856108A

PATIENT
  Age: 66 Year
  Weight: 117.39 kg

DRUGS (1)
  1. CAPIVASERTIB [Suspect]
     Active Substance: CAPIVASERTIB
     Dosage: 2 DOSAGE FORM, BID
     Route: 065

REACTIONS (6)
  - Bile duct stenosis [Unknown]
  - Nausea [Unknown]
  - Dysgeusia [Unknown]
  - Urine analysis abnormal [Unknown]
  - Jaundice [Unknown]
  - Product dose omission issue [Unknown]
